FAERS Safety Report 15948169 (Version 2)
Quarter: 2024Q1

REPORT INFORMATION
  Report Type: Spontaneous
  Country: ES (occurrence: ES)
  Receive Date: 20190212
  Receipt Date: 20240305
  Transmission Date: 20240410
  Serious: Yes (Hospitalization, Other)
  Sender: FDA-Public Use
  Company Number: ES-AUROBINDO-AUR-APL-2019-006888

PATIENT
  Age: 86 Year
  Sex: Female

DRUGS (6)
  1. DEXKETOPROFEN [Suspect]
     Active Substance: DEXKETOPROFEN
     Indication: Sciatica
     Dosage: 25 MILLIGRAM, 3 TIMES A DAY DEXKETOPROFENO 25/8 H
     Route: 065
  2. ACETAMINOPHEN\TRAMADOL [Suspect]
     Active Substance: ACETAMINOPHEN\TRAMADOL
     Indication: Sciatica
     Dosage: TRAMADOL 37.5/ PARACETAMOL 325 MG EACH 8 H
     Route: 065
  3. DIAZEPAM [Suspect]
     Active Substance: DIAZEPAM
     Indication: Sciatica
     Dosage: 5 MILLIGRAM, DAILY (DIAZEPAM 5 MG/24 H)
     Route: 065
  4. METAMIZOLE [Suspect]
     Active Substance: METAMIZOLE
     Indication: Sciatica
     Dosage: 575 MILLIGRAM, 3 TIMES A DAY  (METAMIZOL 575/8 H)
     Route: 065
  5. PREDNISONE [Suspect]
     Active Substance: PREDNISONE
     Indication: Pain
     Dosage: 30 MILLIGRAM, DAILY (PREDNISONA 30 MG/24 H)
     Route: 065
  6. OMEPRAZOLE [Concomitant]
     Active Substance: OMEPRAZOLE
     Indication: Sciatica
     Dosage: 20 MILLIGRAM, DAILY (OMEPRAZOL 20 MG/24 H)
     Route: 065

REACTIONS (2)
  - Cholestasis [Recovered/Resolved]
  - Transaminases increased [Recovered/Resolved]
